FAERS Safety Report 7860204-2 (Version None)
Quarter: 2011Q4

REPORT INFORMATION
  Report Type: 
  Country: None (occurrence: None)
  Receive Date: 20111026
  Receipt Date: 20111012
  Transmission Date: 20120403
  Serious: Yes (Other)
  Sender: FDA-Public Use
  Company Number: 2011-3682

PATIENT
  Age: 10 Year
  Sex: Male

DRUGS (5)
  1. INCRELEX [Suspect]
     Indication: FAILURE TO THRIVE
     Dosage: 46 UNITS (23 UNITS,2 IN 1 D),SUBCUTANEOUS
     Route: 058
     Dates: start: 20110429
  2. MIRALAX [Concomitant]
  3. DIASTAT [Concomitant]
  4. KEPPRA [Concomitant]
  5. TOPAMAX [Concomitant]

REACTIONS (5)
  - CONVULSION [None]
  - NAUSEA [None]
  - VOMITING [None]
  - CONDITION AGGRAVATED [None]
  - OFF LABEL USE [None]
